FAERS Safety Report 18409338 (Version 1)
Quarter: 2020Q4

REPORT INFORMATION
  Report Type: Spontaneous
  Country: US (occurrence: US)
  Receive Date: 20201021
  Receipt Date: 20201021
  Transmission Date: 20210114
  Serious: Yes (Death, Hospitalization, Other)
  Sender: FDA-Public Use
  Company Number: US-AMGEN-USASP2020169528

PATIENT
  Age: 53 Year
  Sex: Female

DRUGS (2)
  1. PANITUMUMAB [Suspect]
     Active Substance: PANITUMUMAB
     Indication: APPENDIX CANCER
     Dosage: UNK
     Route: 065
  2. PANITUMUMAB [Suspect]
     Active Substance: PANITUMUMAB
     Dosage: UNK
     Route: 065

REACTIONS (4)
  - Metastasis [Fatal]
  - Intestinal obstruction [Recovering/Resolving]
  - Off label use [Unknown]
  - Trichomegaly [Recovered/Resolved]
